FAERS Safety Report 12934596 (Version 2)
Quarter: 2016Q4

REPORT INFORMATION
  Report Type: Spontaneous
  Country: TR (occurrence: TR)
  Receive Date: 20161111
  Receipt Date: 20161214
  Transmission Date: 20170207
  Serious: Yes (Other)
  Sender: FDA-Public Use
  Company Number: TR-ACTELION-A-NJ2016-145478

PATIENT
  Age: 24 Year
  Sex: Female

DRUGS (2)
  1. VENTAVIS [Suspect]
     Active Substance: ILOPROST
     Dosage: UNK
     Route: 055
  2. VENTAVIS [Suspect]
     Active Substance: ILOPROST
     Indication: CARDIAC DISORDER
     Dosage: UNK
     Route: 055

REACTIONS (4)
  - Drug dose omission [Recovered/Resolved]
  - Dyspnoea [Recovered/Resolved]
  - Coma [Recovered/Resolved]
  - Device defective [Recovered/Resolved]
